FAERS Safety Report 16820026 (Version 1)
Quarter: 2019Q3

REPORT INFORMATION
  Report Type: Spontaneous
  Country: DE (occurrence: DE)
  Receive Date: 20190918
  Receipt Date: 20190918
  Transmission Date: 20191005
  Serious: No
  Sender: FDA-Public Use
  Company Number: DE-LUPIN PHARMACEUTICALS INC.-2019-05007

PATIENT
  Age: 19 Year
  Sex: Male

DRUGS (14)
  1. CITALOPRAM [Suspect]
     Active Substance: CITALOPRAM HYDROBROMIDE
     Indication: OBSESSIVE-COMPULSIVE DISORDER
     Dosage: UPTO 40 MILLIGRAM, QD
     Route: 065
  2. RISPERIDONE. [Suspect]
     Active Substance: RISPERIDONE
     Indication: SCHIZOPHRENIFORM DISORDER
     Dosage: UNK, HIGHER DOSES LED TO AN INCREASE IN INNER RESTLESSNESS,
     Route: 065
  3. OLANZAPINE. [Suspect]
     Active Substance: OLANZAPINE
     Indication: SCHIZOPHRENIFORM DISORDER
     Dosage: UNK, UPTO 20 MG/DAY
     Route: 065
  4. METHYLPREDNISOLONE. [Suspect]
     Active Substance: METHYLPREDNISOLONE
     Indication: NEUROPSYCHIATRIC LUPUS
     Dosage: 1000 MILLIGRAM, QD
     Route: 042
     Dates: start: 201612
  5. BIPERIDEN [Concomitant]
     Active Substance: BIPERIDEN
     Dosage: 4 MILLIGRAM, QD
     Route: 065
  6. ARIPIPRAZOLE. [Suspect]
     Active Substance: ARIPIPRAZOLE
     Dosage: 5 MILLIGRAM, QD
     Route: 065
  7. METHYLPREDNISOLONE. [Suspect]
     Active Substance: METHYLPREDNISOLONE
     Dosage: UNK, TAPERED OVER APPROXIMATELY 5 WEEKS
     Route: 065
  8. CARBAMAZEPINE. [Concomitant]
     Active Substance: CARBAMAZEPINE
     Indication: SCHIZOPHRENIFORM DISORDER
     Dosage: UNK, UP TO 500 MG/ DAY
     Route: 065
  9. BIPERIDEN [Concomitant]
     Active Substance: BIPERIDEN
     Indication: EXTRAPYRAMIDAL DISORDER
     Dosage: UNK, UP TO 4 MG/DAY
     Route: 065
  10. METHYLPREDNISOLONE. [Suspect]
     Active Substance: METHYLPREDNISOLONE
     Dosage: 500 MILLIGRAM, QD
     Route: 065
  11. CARBAMAZEPINE. [Concomitant]
     Active Substance: CARBAMAZEPINE
     Dosage: 500 MILLIGRAM, QD
     Route: 065
  12. ARIPIPRAZOLE. [Suspect]
     Active Substance: ARIPIPRAZOLE
     Dosage: 7.5 MILLIGRAM, QD
     Route: 065
  13. ARIPIPRAZOLE. [Suspect]
     Active Substance: ARIPIPRAZOLE
     Indication: SCHIZOPHRENIFORM DISORDER
     Dosage: UNK, HIGHER DOSES LED TO AN INCREASE IN INNER RESTLESSNESS
     Route: 065
  14. RISPERIDONE. [Suspect]
     Active Substance: RISPERIDONE
     Dosage: 5 MILLIGRAM, QD
     Route: 065

REACTIONS (2)
  - Acne [Unknown]
  - Restlessness [Recovering/Resolving]
